FAERS Safety Report 8920264 (Version 2)
Quarter: 2012Q4

REPORT INFORMATION
  Report Type: 
  Country: US (occurrence: US)
  Receive Date: 20121122
  Receipt Date: 20121204
  Transmission Date: 20130627
  Serious: Yes (Hospitalization, Other)
  Sender: FDA-Public Use
  Company Number: PHEH2012US022616

PATIENT
  Age: 53 Year
  Sex: Female

DRUGS (16)
  1. TASIGNA [Suspect]
     Indication: CHRONIC MYELOID LEUKAEMIA
     Dosage: 150 mg, BID
     Route: 048
     Dates: start: 20121109
  2. SINGULAIR [Concomitant]
     Dosage: 4 mg, daily
     Dates: start: 20121107
  3. ZYRTEC [Concomitant]
     Indication: ASTHMA
     Dosage: 10 mg, UNK
     Dates: start: 20121107
  4. GAS-X [Concomitant]
     Dates: start: 20121107
  5. CARISOPRODOL [Concomitant]
     Indication: GASTROOESOPHAGEAL REFLUX DISEASE
     Dates: start: 20121107
  6. ZOFRAN [Concomitant]
     Dates: start: 20121107
  7. LISINOPRIL + HIDROCLOROTIAZIDA [Concomitant]
     Indication: HYPERTENSION
     Dosage: 1 DF, daily
     Dates: start: 20121107
  8. TEMAZEPAM [Concomitant]
     Dates: start: 20121107
  9. EPIPEN [Concomitant]
     Dates: start: 20121107
  10. FUROSEMIDE [Concomitant]
     Indication: OEDEMA
     Dates: start: 20121107
  11. SIMVASTATIN [Concomitant]
     Indication: HYPERLIPIDAEMIA
     Dosage: 40 mg, daily
  12. RANITIDINE [Concomitant]
  13. VITAMIN D [Concomitant]
     Dates: start: 20121107
  14. XOPENEX [Concomitant]
     Dates: start: 20121107
  15. LEVOXYL [Concomitant]
     Indication: HYPOTHYROIDISM
     Dates: start: 20121107
  16. HYDROCODONE/APAP [Concomitant]
     Indication: PAIN
     Dates: start: 20121107

REACTIONS (4)
  - Pancreatitis acute [Recovering/Resolving]
  - Abdominal pain upper [Recovering/Resolving]
  - Amylase increased [Recovering/Resolving]
  - Lipase increased [Recovering/Resolving]
